FAERS Safety Report 17168879 (Version 1)
Quarter: 2019Q4

REPORT INFORMATION
  Report Type: Spontaneous
  Country: US (occurrence: US)
  Receive Date: 20191217
  Receipt Date: 20191217
  Transmission Date: 20200122
  Serious: Yes (Other)
  Sender: FDA-Public Use
  Company Number: None

PATIENT
  Age: 34 Year
  Sex: Male
  Weight: 105.3 kg

DRUGS (1)
  1. NP THYROID [Suspect]
     Active Substance: LEVOTHYROXINE\LIOTHYRONINE
     Indication: HYPOTHYROIDISM
     Dosage: ?          QUANTITY:30 TABLET(S);?
     Route: 048
     Dates: start: 20191001, end: 20191217

REACTIONS (11)
  - Fatigue [None]
  - Anxiety [None]
  - Migraine [None]
  - Abdominal pain [None]
  - Vision blurred [None]
  - Depression [None]
  - Hypoaesthesia [None]
  - Product taste abnormal [None]
  - Product odour abnormal [None]
  - Feeling abnormal [None]
  - Disturbance in attention [None]

NARRATIVE: CASE EVENT DATE: 20191209
